FAERS Safety Report 24164859 (Version 2)
Quarter: 2024Q3

REPORT INFORMATION
  Report Type: Spontaneous
  Country: JP (occurrence: None)
  Receive Date: 20240801
  Receipt Date: 20240805
  Transmission Date: 20241017
  Serious: Yes (Death, Hospitalization, Other)
  Sender: UNICHEM
  Company Number: JP-Unichem Pharmaceuticals (USA) Inc-UCM202407-000936

PATIENT
  Age: 45 Year
  Sex: Female
  Weight: 90 kg

DRUGS (1)
  1. METFORMIN HYDROCHLORIDE [Suspect]
     Active Substance: METFORMIN HYDROCHLORIDE
     Indication: Diabetes mellitus
     Dosage: 71 GRAMS OF PACKET

REACTIONS (13)
  - Vasoplegia syndrome [Recovered/Resolved]
  - Seizure [Recovered/Resolved]
  - Altered state of consciousness [Recovered/Resolved]
  - Pulseless electrical activity [Unknown]
  - Coma scale normal [Unknown]
  - Shock [Unknown]
  - Hypoxic-ischaemic encephalopathy [Unknown]
  - Cardiac arrest [Recovered/Resolved]
  - Circulatory collapse [Unknown]
  - Hypotension [Unknown]
  - Lactic acidosis [Fatal]
  - Toxicity to various agents [Fatal]
  - Overdose [Unknown]
